FAERS Safety Report 6691967-X (Version None)
Quarter: 2010Q2

REPORT INFORMATION
  Report Type: 
  Country: None (occurrence: None)
  Receive Date: 20100422
  Receipt Date: 20100419
  Transmission Date: 20101027
  Serious: Yes (Death)
  Sender: FDA-Public Use
  Company Number: PHHY2010MX24695

PATIENT
  Age: 72 Year
  Sex: Female

DRUGS (1)
  1. EXJADE [Suspect]
     Dosage: 3 TABLETS (500 MG) DAILY
     Route: 048

REACTIONS (2)
  - BLOOD COUNT ABNORMAL [None]
  - RESPIRATORY ARREST [None]
